FAERS Safety Report 24360540 (Version 2)
Quarter: 2024Q4

REPORT INFORMATION
  Report Type: Spontaneous
  Country: JP (occurrence: JP)
  Receive Date: 20240925
  Receipt Date: 20241004
  Transmission Date: 20250115
  Serious: Yes (Hospitalization, Other)
  Sender: MDD OPERATIONS
  Company Number: JP-ZAMBON-202402537COR

PATIENT
  Age: 80 Year
  Sex: Male

DRUGS (1)
  1. SAFINAMIDE [Suspect]
     Active Substance: SAFINAMIDE
     Indication: Product used for unknown indication
     Dosage: NOT PROVIDED
     Route: 048

REACTIONS (2)
  - Dysphagia [Unknown]
  - Physical deconditioning [Unknown]
